FAERS Safety Report 15599253 (Version 1)
Quarter: 2018Q4

REPORT INFORMATION
  Report Type: Report from Study
  Country: US (occurrence: US)
  Receive Date: 20181108
  Receipt Date: 20181108
  Transmission Date: 20190205
  Serious: Yes (Hospitalization)
  Sender: FDA-Public Use
  Company Number: US-JNJFOC-20181107400

PATIENT
  Age: 78 Year
  Sex: Male

DRUGS (18)
  1. IMBRUVICA [Suspect]
     Active Substance: IBRUTINIB
     Indication: CHRONIC LYMPHOCYTIC LEUKAEMIA
     Route: 048
     Dates: start: 20180601
  2. COUMADIN [Concomitant]
     Active Substance: WARFARIN SODIUM
  3. NEXIUM [Concomitant]
     Active Substance: ESOMEPRAZOLE MAGNESIUM
  4. MIDODRINE [Concomitant]
     Active Substance: MIDODRINE
  5. OSTEO BI-FLEX [Concomitant]
     Active Substance: CHONDROITIN SULFATE A\GLUCOSAMINE
  6. RAPAFLO [Concomitant]
     Active Substance: SILODOSIN
  7. CALCIUM [Concomitant]
     Active Substance: CALCIUM
  8. FINASTERIDE. [Concomitant]
     Active Substance: FINASTERIDE
  9. FOLIC ACID. [Concomitant]
     Active Substance: FOLIC ACID
     Route: 065
  10. PROLIA [Concomitant]
     Active Substance: DENOSUMAB
  11. METOPROLOL SUCCINATE. [Concomitant]
     Active Substance: METOPROLOL SUCCINATE
  12. PREDNISONE. [Concomitant]
     Active Substance: PREDNISONE
  13. LEXAPRO [Concomitant]
     Active Substance: ESCITALOPRAM OXALATE
  14. SYNTHROID [Concomitant]
     Active Substance: LEVOTHYROXINE SODIUM
  15. METHENAMINE [Concomitant]
     Active Substance: METHENAMINE
  16. ALLOPURINOL. [Concomitant]
     Active Substance: ALLOPURINOL
  17. SIMVASTATIN. [Concomitant]
     Active Substance: SIMVASTATIN
  18. PROBIOTIC                          /06395501/ [Concomitant]
     Active Substance: BIFIDOBACTERIUM ANIMALIS LACTIS

REACTIONS (1)
  - Pleural effusion [Not Recovered/Not Resolved]

NARRATIVE: CASE EVENT DATE: 20181029
